FAERS Safety Report 11220633 (Version 3)
Quarter: 2015Q3

REPORT INFORMATION
  Report Type: Spontaneous
  Country: US (occurrence: US)
  Receive Date: 20150626
  Receipt Date: 20150807
  Transmission Date: 20151125
  Serious: Yes (Hospitalization, Other)
  Sender: FDA-Public Use
  Company Number: US-MERCK-1506USA011756

PATIENT
  Age: 65 Year
  Sex: Female

DRUGS (8)
  1. LEVOTHYROXINE SODIUM. [Suspect]
     Active Substance: LEVOTHYROXINE SODIUM
     Indication: THYROIDECTOMY
     Dosage: 100 MICROGRAM, ONCE A DAY
     Route: 048
     Dates: start: 2003
  2. JANUVIA [Suspect]
     Active Substance: SITAGLIPTIN PHOSPHATE
     Indication: DIABETES MELLITUS
     Dosage: 100 MG, ONCE A DAY
     Route: 048
     Dates: start: 20141224
  3. ATORVASTATIN [Concomitant]
     Active Substance: ATORVASTATIN
     Dosage: 40 MG, QD
     Dates: start: 2008
  4. MELOXICAM. [Suspect]
     Active Substance: MELOXICAM
     Dosage: 15 MG, QD
     Route: 048
     Dates: start: 2012
  5. LEVEMIR [Concomitant]
     Active Substance: INSULIN DETEMIR
     Indication: DIABETES MELLITUS
     Dosage: 20 IU, ONCE A DAY
     Dates: start: 20141224
  6. GABAPENTIN. [Concomitant]
     Active Substance: GABAPENTIN
     Indication: NERVE INJURY
     Dosage: 300 MG, THREE TIMES DAILY
     Dates: start: 20131120
  7. NIFEDICAL XL [Concomitant]
     Active Substance: NIFEDIPINE
     Dosage: 60 MG, QD
     Dates: start: 1997
  8. METFORMIN HYDROCHLORIDE. [Concomitant]
     Active Substance: METFORMIN HYDROCHLORIDE
     Indication: DIABETES MELLITUS
     Dosage: 500 MG, TWICE A DAY
     Dates: start: 20141224

REACTIONS (8)
  - Diplopia [Unknown]
  - Knee arthroplasty [Unknown]
  - Arthritis [Unknown]
  - Epilepsy [Not Recovered/Not Resolved]
  - Diabetes mellitus [Not Recovered/Not Resolved]
  - Abdominal discomfort [Unknown]
  - Anxiety [Unknown]
  - Cerebrovascular accident [Not Recovered/Not Resolved]

NARRATIVE: CASE EVENT DATE: 201207
